FAERS Safety Report 8237110-7 (Version None)
Quarter: 2012Q1

REPORT INFORMATION
  Report Type: 
  Country: None (occurrence: None)
  Receive Date: 20120327
  Receipt Date: 20120316
  Transmission Date: 20120608
  Serious: No
  Sender: FDA-Public Use
  Company Number: GB-JNJFOC-20120306209

PATIENT
  Age: 44 Year
  Sex: Female

DRUGS (2)
  1. DURAGESIC-100 [Suspect]
     Indication: BACK PAIN
     Route: 062
     Dates: start: 20060101
  2. DURAGESIC-100 [Suspect]
     Route: 062

REACTIONS (8)
  - INAPPROPRIATE SCHEDULE OF DRUG ADMINISTRATION [None]
  - AGITATION [None]
  - HYPERHIDROSIS [None]
  - WITHDRAWAL SYNDROME [None]
  - PRODUCT QUALITY ISSUE [None]
  - VOMITING [None]
  - DRUG TOLERANCE [None]
  - CHILLS [None]
